FAERS Safety Report 18336315 (Version 1)
Quarter: 2020Q4

REPORT INFORMATION
  Report Type: Spontaneous
  Country: DE (occurrence: DE)
  Receive Date: 20201001
  Receipt Date: 20201001
  Transmission Date: 20210113
  Serious: Yes (Hospitalization)
  Sender: FDA-Public Use
  Company Number: DE-TEVA-2020-DE-1832098

PATIENT
  Age: 87 Year
  Sex: Female

DRUGS (9)
  1. GABAPENTIN. [Concomitant]
     Active Substance: GABAPENTIN
     Dosage: 300 MILLIGRAM DAILY; 0-0-1-0
     Route: 048
  2. INSULIN (HUMAN) [Concomitant]
     Active Substance: INSULIN HUMAN
     Dosage: 6 DOSAGE FORMS DAILY; 1 IU, 6-0-0-0, AMPOULES
     Route: 058
  3. TORASEMID [Suspect]
     Active Substance: TORSEMIDE
     Dosage: 20 MILLIGRAM DAILY; 1-0-0-0
     Route: 048
  4. ZOPICLON [Concomitant]
     Active Substance: ZOPICLONE
     Dosage: 7.5 MILLIGRAM DAILY;  0-0-0-1
     Route: 048
  5. INSULIN GLARGIN [Concomitant]
     Active Substance: INSULIN GLARGINE
     Dosage: 8 DOSAGE FORMS DAILY; 1 IU, 0-0-8-0, AMPOULES
     Route: 058
  6. XIPAMID [Suspect]
     Active Substance: XIPAMIDE
     Dosage: 10 MILLIGRAM DAILY;  0-1-0-0
     Route: 048
  7. PANTOPRAZOL [Concomitant]
     Active Substance: PANTOPRAZOLE SODIUM
     Dosage: 20 MILLIGRAM DAILY;  1-0-0-0
     Route: 048
  8. FERRO SANOL DUODENAL 100MG [Concomitant]
     Dosage: 2 DOSAGE FORMS DAILY; 100 MG, 2-0-0-0
     Route: 048
  9. BISOPROLOL [Concomitant]
     Active Substance: BISOPROLOL
     Dosage: 2.5 MILLIGRAM DAILY; 1-0-0-0
     Route: 048

REACTIONS (5)
  - General physical health deterioration [Unknown]
  - Oedema peripheral [Unknown]
  - Condition aggravated [Unknown]
  - Weight increased [Unknown]
  - Dyspnoea [Unknown]

NARRATIVE: CASE EVENT DATE: 202004
